FAERS Safety Report 10541943 (Version 2)
Quarter: 2015Q1

REPORT INFORMATION
  Report Type: Spontaneous
  Country: BR (occurrence: BR)
  Receive Date: 20141024
  Receipt Date: 20150113
  Transmission Date: 20150720
  Serious: Yes (Death, Other)
  Sender: FDA-Public Use
  Company Number: BR-PFIZER INC-2014290426

PATIENT
  Age: 75 Year
  Sex: Male
  Weight: 60 kg

DRUGS (3)
  1. SUTENT [Suspect]
     Active Substance: SUNITINIB MALATE
     Dosage: 25 MG, ALTERNATE DAY
     Route: 048
  2. SUTENT [Suspect]
     Active Substance: SUNITINIB MALATE
     Indication: RENAL CELL CARCINOMA
     Dosage: 50 MG, UNK
     Route: 048
     Dates: start: 20140625
  3. CELEBRA [Concomitant]
     Active Substance: CELECOXIB
     Indication: PAIN
     Dosage: 200 MG, 1X/DAY

REACTIONS (11)
  - Disease progression [Unknown]
  - Rash macular [Not Recovered/Not Resolved]
  - Respiratory failure [Unknown]
  - Erysipelas [Unknown]
  - Wound [Unknown]
  - Palmar-plantar erythrodysaesthesia syndrome [Unknown]
  - Wound infection [Recovered/Resolved]
  - Rash [Unknown]
  - Death [Fatal]
  - Renal cell carcinoma [Unknown]
  - Decreased appetite [Unknown]

NARRATIVE: CASE EVENT DATE: 2014
